FAERS Safety Report 23380938 (Version 1)
Quarter: 2024Q1

REPORT INFORMATION
  Report Type: Other
  Country: FR (occurrence: FR)
  Receive Date: 20240109
  Receipt Date: 20240109
  Transmission Date: 20240410
  Serious: Yes (Death)
  Sender: FDA-Public Use
  Company Number: None

PATIENT

DRUGS (2)
  1. TRAMADOL [Interacting]
     Active Substance: TRAMADOL\TRAMADOL HYDROCHLORIDE
     Indication: Analgesic intervention supportive therapy
     Dosage: 3 DOSAGE FORM
     Route: 065
     Dates: start: 20231008
  2. ACETAMINOPHEN\BELLADONNA LEAF\CAFFEINE\OPIUM [Interacting]
     Active Substance: ACETAMINOPHEN\BELLADONNA LEAF\CAFFEINE\OPIUM
     Indication: Analgesic intervention supportive therapy
     Dosage: 4 DOSAGE FORM
     Route: 048
     Dates: start: 20231008

REACTIONS (2)
  - Coma [Fatal]
  - Respiratory distress [Fatal]

NARRATIVE: CASE EVENT DATE: 20231008
